FAERS Safety Report 7113243-3 (Version None)
Quarter: 2010Q4

REPORT INFORMATION
  Report Type: 
  Country: None (occurrence: None)
  Receive Date: 20101119
  Receipt Date: 20100405
  Transmission Date: 20110411
  Serious: No
  Sender: FDA-Public Use
  Company Number: A0849717A

PATIENT
  Age: 57 Year
  Sex: Female

DRUGS (14)
  1. WELLBUTRIN SR [Suspect]
     Dosage: 150MG TWICE PER DAY
     Route: 048
     Dates: start: 20100216, end: 20100310
  2. MICARDIS HCT [Concomitant]
  3. DILTIAZEM [Concomitant]
  4. ULTRAM [Concomitant]
  5. METOPROLOL [Concomitant]
  6. METFORMIN HCL [Concomitant]
  7. NAPROXEN SODIUM [Concomitant]
  8. PREVACID [Concomitant]
  9. LEXAPRO [Concomitant]
  10. TEGRETOL [Concomitant]
  11. PHENERGAN [Concomitant]
  12. FLEXERIL [Concomitant]
  13. ASPIRIN [Concomitant]
  14. FLONASE [Concomitant]

REACTIONS (4)
  - DYSKINESIA [None]
  - DYSSTASIA [None]
  - MUSCLE DISORDER [None]
  - MUSCULAR WEAKNESS [None]
